FAERS Safety Report 7956129-4 (Version None)
Quarter: 2011Q4

REPORT INFORMATION
  Report Type: 
  Country: None (occurrence: None)
  Receive Date: 20111115
  Receipt Date: 20111102
  Transmission Date: 20120403
  Serious: Yes (Hospitalization)
  Sender: FDA-Public Use
  Company Number: 2011PROUSA00708

PATIENT
  Age: 60 Year
  Sex: Male
  Weight: 114 kg

DRUGS (8)
  1. FLOMAX	/00889901/ (MORNIFLUMATE) [Concomitant]
  2. LASIX [Concomitant]
  3. PROVENGE [Suspect]
  4. CASODEX [Concomitant]
  5. LUPRON [Concomitant]
  6. PROVENGE [Suspect]
     Indication: PROSTATE CANCER METASTATIC
     Dosage: 250 ML, SINGLE, INTRAVENOUS
     Route: 042
     Dates: start: 20111003, end: 20111003
  7. PROVENGE [Suspect]
     Indication: PROSTATE CANCER METASTATIC
     Dosage: 250 ML, SINGLE, INTRAVENOUS
     Route: 042
     Dates: start: 20110919, end: 20110919
  8. NEURONTIN [Concomitant]

REACTIONS (4)
  - AIR EMBOLISM [None]
  - HEPARIN-INDUCED THROMBOCYTOPENIA [None]
  - CHEST PAIN [None]
  - VOMITING [None]
